FAERS Safety Report 6762598-8 (Version None)
Quarter: 2010Q2

REPORT INFORMATION
  Report Type: 
  Country: None (occurrence: None)
  Receive Date: 20100609
  Receipt Date: 20100528
  Transmission Date: 20101027
  Serious: Yes (Disabling)
  Sender: FDA-Public Use
  Company Number: GB-TEVA-236173ISR

PATIENT
  Age: 68 Year
  Sex: Male
  Weight: 90 kg

DRUGS (2)
  1. DICLOFENAC [Suspect]
     Indication: POSTOPERATIVE HERNIA
     Route: 048
     Dates: start: 20100201, end: 20100320
  2. CARBOPROST [Suspect]
     Indication: POSTOPERATIVE HERNIA
     Route: 048
     Dates: start: 20091201, end: 20100406

REACTIONS (1)
  - MYALGIA [None]
